FAERS Safety Report 5305382-4 (Version None)
Quarter: 2007Q2

REPORT INFORMATION
  Report Type: 
  Country: None (occurrence: None)
  Receive Date: 20070416
  Receipt Date: 20070402
  Transmission Date: 20071010
  Serious: Yes (Life-Threatening, Hospitalization)
  Sender: FDA-Public Use
  Company Number: DSA_29673_2007

PATIENT
  Age: 63 Year
  Sex: Male

DRUGS (3)
  1. LORAZEPAM [Suspect]
     Dosage: 50 MG ONCE PO
     Route: 048
     Dates: start: 20070330, end: 20070330
  2. SONATA [Suspect]
     Dosage: 140 MG ONCE PO
     Route: 048
     Dates: start: 20070330, end: 20070330
  3. AMLIDOPINE [Suspect]
     Dosage: 1000 MG ONCE PO
     Route: 048
     Dates: start: 20070330, end: 20070330

REACTIONS (5)
  - FATIGUE [None]
  - HYPOTENSION [None]
  - MULTIPLE DRUG OVERDOSE [None]
  - SUICIDE ATTEMPT [None]
  - TACHYCARDIA [None]
